FAERS Safety Report 7376279-3 (Version None)
Quarter: 2011Q1

REPORT INFORMATION
  Report Type: 
  Country: None (occurrence: None)
  Receive Date: 20110325
  Receipt Date: 20110321
  Transmission Date: 20110831
  Serious: Yes (Hospitalization, Other)
  Sender: FDA-Public Use
  Company Number: FR-PFIZER INC-2011062407

PATIENT
  Age: 43 Year
  Sex: Male

DRUGS (11)
  1. ESIDRIX [Concomitant]
     Dosage: UNK
     Dates: end: 20101211
  2. TOPIRAMATE [Concomitant]
  3. UVEDOSE [Concomitant]
  4. NEXIUM [Concomitant]
  5. SEROPRAM [Concomitant]
  6. LYRICA [Suspect]
     Dosage: 300 MG, 2X/DAY
     Dates: start: 20100929, end: 20101211
  7. BI-PROFENID [Concomitant]
     Dosage: UNK
     Dates: end: 20101211
  8. ATACAND [Concomitant]
     Dosage: UNK
     Dates: end: 20101211
  9. PARIET [Concomitant]
     Dosage: UNK
     Dates: end: 20101211
  10. DAFALGAN [Concomitant]
  11. SECTRAL [Concomitant]

REACTIONS (5)
  - URINARY TRACT INFECTION [None]
  - RHABDOMYOLYSIS [None]
  - RENAL COLIC [None]
  - RENAL FAILURE ACUTE [None]
  - DISTURBANCE IN ATTENTION [None]
